FAERS Safety Report 8270923-4 (Version None)
Quarter: 2012Q2

REPORT INFORMATION
  Report Type: 
  Country: None (occurrence: None)
  Receive Date: 20120410
  Receipt Date: 20120404
  Transmission Date: 20120825
  Serious: No
  Sender: FDA-Public Use
  Company Number: US-PFIZER INC-2012033354

PATIENT
  Sex: Female
  Weight: 73 kg

DRUGS (6)
  1. PROTONIX [Suspect]
     Indication: HYPERCHLORHYDRIA
     Dosage: 40 MG, 1X/DAY
     Route: 048
     Dates: start: 20070101, end: 20120101
  2. GLIPIZIDE [Concomitant]
     Indication: DIABETES MELLITUS
     Dosage: 5 MG, 2X/DAY
  3. TRAMADOL [Concomitant]
     Indication: PAIN
     Dosage: 50 MG, 3X/DAY
     Route: 048
  4. TRIAZOLAM [Concomitant]
     Dosage: 0.25 MG, 1X/DAY
  5. GAS-X [Concomitant]
     Indication: FLATULENCE
     Dosage: UNK, 3X/DAY
     Route: 048
  6. LISINOPRIL AND HYDROCHLOROTHIAZIDE [Concomitant]
     Indication: HYPERTENSION
     Dosage: 25/20 MG

REACTIONS (3)
  - DRUG INEFFECTIVE [None]
  - ANXIETY [None]
  - ABDOMINAL DISCOMFORT [None]
